FAERS Safety Report 17730032 (Version 5)
Quarter: 2021Q1

REPORT INFORMATION
  Report Type: Report from Study
  Country: US (occurrence: US)
  Receive Date: 20200430
  Receipt Date: 20210215
  Transmission Date: 20210419
  Serious: Yes (Other)
  Sender: FDA-Public Use
  Company Number: US-BIOVITRUM-2020US0596

PATIENT
  Age: 69 Year
  Sex: Male

DRUGS (12)
  1. COLCHICINE. [Concomitant]
     Active Substance: COLCHICINE
  2. ASPIRIN. [Concomitant]
     Active Substance: ASPIRIN
  3. KINERET [Suspect]
     Active Substance: ANAKINRA
     Indication: RHEUMATOID ARTHRITIS
     Route: 058
     Dates: start: 20200122
  4. DEXILANT [Concomitant]
     Active Substance: DEXLANSOPRAZOLE
  5. TORSEMIDE. [Concomitant]
     Active Substance: TORSEMIDE
  6. IBUPROFEN. [Concomitant]
     Active Substance: IBUPROFEN
  7. TRAMADOL?ACETAMINOPHEN [Concomitant]
     Active Substance: ACETAMINOPHEN\TRAMADOL
  8. KINERET [Suspect]
     Active Substance: ANAKINRA
     Indication: PERICARDITIS
  9. OLMESARTAN [Concomitant]
     Active Substance: OLMESARTAN
  10. OXYBUTYNIN CHLORIDE ER [Concomitant]
     Active Substance: OXYBUTYNIN CHLORIDE
  11. ROSUVASTATIN. [Concomitant]
     Active Substance: ROSUVASTATIN
  12. METOPROLOL SUCCINATE. [Concomitant]
     Active Substance: METOPROLOL SUCCINATE

REACTIONS (13)
  - Hyperkeratosis [Unknown]
  - Musculoskeletal stiffness [Unknown]
  - Chest pain [Unknown]
  - Injection site urticaria [Unknown]
  - Vomiting [Unknown]
  - Diarrhoea [Unknown]
  - Injection site pruritus [Unknown]
  - Off label use [Unknown]
  - Cyst [Unknown]
  - Injection site haemorrhage [Unknown]
  - Nasopharyngitis [Unknown]
  - Pericarditis [Unknown]
  - Condition aggravated [Unknown]

NARRATIVE: CASE EVENT DATE: 20200118
